FAERS Safety Report 25826637 (Version 1)
Quarter: 2025Q3

REPORT INFORMATION
  Report Type: Spontaneous
  Country: CO (occurrence: CO)
  Receive Date: 20250920
  Receipt Date: 20250920
  Transmission Date: 20251020
  Serious: Yes (Other)
  Sender: UCB
  Company Number: CO-UCBSA-2025057601

PATIENT
  Sex: Male

DRUGS (3)
  1. CERTOLIZUMAB PEGOL [Suspect]
     Active Substance: CERTOLIZUMAB PEGOL
     Indication: Ankylosing spondylitis
  2. HYDROCODONE BITARTRATE AND ACETAMINOPHEN [Concomitant]
     Active Substance: ACETAMINOPHEN\HYDROCODONE BITARTRATE
     Indication: Product used for unknown indication
     Dosage: 325 MILLIGRAM, 2X/DAY (BID), TAKE 1 TABLET WITH BREAKFAST AND DINNER
     Route: 048
  3. ETORICOXIB [Concomitant]
     Active Substance: ETORICOXIB
     Indication: Product used for unknown indication
     Dosage: 120 MILLIGRAM, ONCE DAILY (QD)
     Route: 048

REACTIONS (7)
  - Pain [Unknown]
  - Back pain [Unknown]
  - Arthropathy [Unknown]
  - Gait disturbance [Unknown]
  - Fibromyalgia [Unknown]
  - Insurance issue [Unknown]
  - Therapy interrupted [Unknown]
